FAERS Safety Report 4283466-X (Version None)
Quarter: 2004Q1

REPORT INFORMATION
  Report Type: 
  Country: None (occurrence: None)
  Receive Date: 20040202
  Receipt Date: 20031127
  Transmission Date: 20041129
  Serious: Yes (Life-Threatening)
  Sender: FDA-Public Use
  Company Number: PHRM2003FR03155

PATIENT
  Age: 9 Month
  Sex: Female
  Weight: 11 kg

DRUGS (6)
  1. SIMULECT [Suspect]
     Indication: LIVER TRANSPLANT
     Dosage: 10 MG, ONCE/SINGLE
     Route: 042
     Dates: start: 20030930, end: 20030930
  2. PROGRAF [Concomitant]
     Indication: LIVER TRANSPLANT
  3. SUFENTANIL CITRATE [Concomitant]
  4. HYPNOVEL [Concomitant]
  5. CLAVENTIN [Concomitant]
  6. TRIFLUCAN [Concomitant]

REACTIONS (2)
  - PYREXIA [None]
  - SHOCK [None]
